FAERS Safety Report 22989916 (Version 2)
Quarter: 2024Q4

REPORT INFORMATION
  Report Type: Spontaneous
  Country: US (occurrence: US)
  Receive Date: 20230927
  Receipt Date: 20241015
  Transmission Date: 20250115
  Serious: No
  Sender: CELLTRION
  Company Number: US-CELLTRION INC.-2022US020228

PATIENT

DRUGS (2)
  1. INFLECTRA [Suspect]
     Active Substance: INFLIXIMAB-DYYB
     Indication: Crohn^s disease
     Dosage: 100MG PER VIAL, PATIENTS RECEIVES 400MG, IV INFUSION, EVERY 8 WEEKS
     Route: 042
     Dates: start: 20210215
  2. INFLECTRA [Suspect]
     Active Substance: INFLIXIMAB-DYYB
     Dosage: 100MG PER VIAL, PATIENTS RECEIVES 400MG, IV INFUSION, EVERY 8 WEEKS100MG PER VIAL, PATIENTS RECEIVES
     Route: 042
     Dates: start: 20220930

REACTIONS (3)
  - Product distribution issue [Unknown]
  - Product dose omission issue [Unknown]
  - Overdose [Unknown]

NARRATIVE: CASE EVENT DATE: 20220101
